FAERS Safety Report 8888276 (Version 1)
Quarter: 2012Q4

REPORT INFORMATION
  Report Type: 
  Country: SE (occurrence: SE)
  Receive Date: 20121106
  Receipt Date: 20121106
  Transmission Date: 20130627
  Serious: Yes (Hospitalization)
  Sender: FDA-Public Use
  Company Number: SE-PFIZER INC-2012269044

PATIENT
  Sex: Male
  Weight: 123 kg

DRUGS (10)
  1. GENOTROPIN [Suspect]
     Indication: PANHYPOPITUITARISM
     Dosage: 0.3 mg, 7/wk
     Route: 058
     Dates: start: 20021219
  2. METFORMIN [Concomitant]
     Indication: DIABETES MELLITUS
     Dosage: UNK
     Dates: start: 19950701
  3. LEVOTHYROXINE [Concomitant]
     Indication: BLOOD THYROID STIMULATING HORMONE DECREASED
     Dosage: UNK
     Dates: start: 19990622
  4. LEVOTHYROXINE [Concomitant]
     Indication: PRIMARY HYPOTHYROIDISM
  5. SELOKEN ZOC [Concomitant]
     Indication: HYPERTENSION
     Dosage: UNK
     Dates: start: 19991027
  6. TESTOSTERONE [Concomitant]
     Indication: BLOOD LUTEINISING HORMONE DECREASED
     Dosage: UNK
     Dates: start: 20090715
  7. TESTOSTERONE [Concomitant]
     Indication: BLOOD FOLLICLE STIMULATING HORMONE DECREASED
  8. TESTOSTERONE [Concomitant]
     Indication: TESTICULAR HYPOGONADISM
  9. HYDROCORTONE [Concomitant]
     Indication: BLOOD CORTICOTROPHIN DECREASED
     Dosage: UNK
     Dates: start: 20031104
  10. MINRIN [Concomitant]
     Indication: BLOOD ANTIDIURETIC HORMONE DECREASED
     Dosage: UNK
     Dates: start: 19960618

REACTIONS (1)
  - Oropharyngeal pain [Unknown]
